FAERS Safety Report 4752118-1 (Version None)
Quarter: 2005Q3

REPORT INFORMATION
  Report Type: 
  Country: None (occurrence: None)
  Receive Date: 20050825
  Receipt Date: 20050412
  Transmission Date: 20060218
  Serious: Yes (Hospitalization)
  Sender: FDA-Public Use
  Company Number: FI-JNJFOC-20031002975

PATIENT
  Sex: Female

DRUGS (3)
  1. INFLIXIMAB [Suspect]
     Indication: SCIATICA
     Route: 042
  2. SOMADRIL [Concomitant]
     Route: 048
  3. CELIPROLOL HYDROCHLORIDE [Concomitant]
     Route: 048

REACTIONS (1)
  - SCIATICA [None]
